FAERS Safety Report 12940632 (Version 2)
Quarter: 2017Q1

REPORT INFORMATION
  Report Type: Report from Study
  Country: CO (occurrence: CO)
  Receive Date: 20161114
  Receipt Date: 20170118
  Transmission Date: 20170428
  Serious: Yes (Other)
  Sender: FDA-Public Use
  Company Number: CO-REGENERON PHARMACEUTICALS, INC.-2016-23749

PATIENT

DRUGS (2)
  1. EYLEA [Suspect]
     Active Substance: AFLIBERCEPT
     Dosage: 2 MG, Q2MON
  2. EYLEA [Suspect]
     Active Substance: AFLIBERCEPT
     Indication: AGE-RELATED MACULAR DEGENERATION
     Dosage: 2 MG, TOTAL DOSES RECEIVED WAS UNSPECIFIED
     Dates: start: 20130528, end: 20160929

REACTIONS (8)
  - Eye pain [Not Recovered/Not Resolved]
  - Eye disorder [Unknown]
  - Eye irritation [Recovered/Resolved]
  - Eye pain [Recovered/Resolved]
  - Eye haemorrhage [Recovering/Resolving]
  - Retinal detachment [Recovering/Resolving]
  - Depressed mood [Not Recovered/Not Resolved]
  - Asthenopia [Recovering/Resolving]

NARRATIVE: CASE EVENT DATE: 20160930
